FAERS Safety Report 8558382 (Version 1)
Quarter: 2012Q4

REPORT INFORMATION
  Report Type: 
  Country: US (occurrence: US)
  Receive Date: 20120906
  Receipt Date: 20120906
  Transmission Date: 20130627
  Serious: Yes (Other)
  Sender: FDA-Public Use
  Company Number: US-GLAXOSMITHKLINE-A0967191A

PATIENT
  Age: 69 Year
  Sex: Female
  Weight: 51.8 kg

DRUGS (2)
  1. TYKERB [Suspect]
     Indication: PRODUCT USED FOR UNKNOWN INDICATION
     Dosage: 250MG Unknown
  2. LOMOTIL [Concomitant]
     Indication: DIARRHOEA
     Route: 048

REACTIONS (4)
  - Neoplasm malignant [Unknown]
  - Diarrhoea [Recovered/Resolved]
  - Nausea [Unknown]
  - Fatigue [Unknown]
